FAERS Safety Report 5732854-0 (Version None)
Quarter: 2008Q2

REPORT INFORMATION
  Report Type: 
  Country: None (occurrence: None)
  Receive Date: 20080507
  Receipt Date: 20080507
  Transmission Date: 20081010
  Serious: No
  Sender: FDA-Public Use
  Company Number: None

PATIENT
  Age: 76 Year
  Sex: Male
  Weight: 55.3 kg

DRUGS (2)
  1. DIGITEK [Suspect]
     Indication: CARDIAC FAILURE
  2. DIGITEK [Suspect]
     Indication: CARDIOMYOPATHY

REACTIONS (5)
  - DIARRHOEA [None]
  - NAUSEA [None]
  - PHARMACEUTICAL PRODUCT COMPLAINT [None]
  - VISUAL BRIGHTNESS [None]
  - VISUAL DISTURBANCE [None]
